FAERS Safety Report 17115498 (Version 1)
Quarter: 2019Q4

REPORT INFORMATION
  Report Type: Report from Study
  Country: JP (occurrence: JP)
  Receive Date: 20191205
  Receipt Date: 20191205
  Transmission Date: 20200122
  Serious: Yes (Death)
  Sender: FDA-Public Use
  Company Number: JP-MYLANLABS-2019M1120038

PATIENT
  Sex: Male

DRUGS (4)
  1. PACLITAXEL ALBUMIN [Suspect]
     Active Substance: PACLITAXEL
     Indication: INTERSTITIAL LUNG DISEASE
  2. CARBOPLATIN. [Suspect]
     Active Substance: CARBOPLATIN
     Indication: INTERSTITIAL LUNG DISEASE
  3. PACLITAXEL ALBUMIN [Suspect]
     Active Substance: PACLITAXEL
     Indication: NON-SMALL CELL LUNG CANCER
     Dosage: 100 MILLIGRAM/SQ. METER, CYCLE
     Route: 065
  4. CARBOPLATIN. [Suspect]
     Active Substance: CARBOPLATIN
     Indication: NON-SMALL CELL LUNG CANCER
     Dosage: DOSE CORRESPONDING TO AN AREA UNDER THE CURVE (AUC) EQUAL TO 6 MG/ ML/MIN (AUC=6) ON DAY 1; EVERY 3
     Route: 065

REACTIONS (2)
  - Pneumonitis [Fatal]
  - Respiratory failure [Fatal]
